FAERS Safety Report 7656542-9 (Version None)
Quarter: 2011Q3

REPORT INFORMATION
  Report Type: 
  Country: None (occurrence: None)
  Receive Date: 20110804
  Receipt Date: 20101201
  Transmission Date: 20111222
  Serious: No
  Sender: FDA-Public Use
  Company Number: US-BAUSCH-2010BL006910

PATIENT
  Age: 15 Year
  Sex: Female
  Weight: 53 kg

DRUGS (3)
  1. OPCON-A [Suspect]
     Indication: EYE ALLERGY
     Route: 047
     Dates: start: 20101128, end: 20101128
  2. ALAVERT [Concomitant]
     Indication: SEASONAL ALLERGY
     Route: 048
  3. METRONIDAZOL ^ALPHARMA^ [Concomitant]

REACTIONS (1)
  - EYE IRRITATION [None]
